FAERS Safety Report 15187325 (Version 1)
Quarter: 2018Q3

REPORT INFORMATION
  Report Type: Report from Study
  Country: US (occurrence: US)
  Receive Date: 20180723
  Receipt Date: 20180723
  Transmission Date: 20181010
  Serious: No
  Sender: FDA-Public Use
  Company Number: US-EXELIXIS-CABO-18012782

PATIENT
  Age: 56 Year
  Sex: Female
  Weight: 90.7 kg

DRUGS (10)
  1. SENNA [Concomitant]
     Active Substance: SENNA LEAF\SENNOSIDES\SENNOSIDES A AND B
  2. ZOLOFT [Concomitant]
     Active Substance: SERTRALINE HYDROCHLORIDE
  3. MIRALAX [Concomitant]
     Active Substance: POLYETHYLENE GLYCOL 3350
  4. SOMA [Concomitant]
     Active Substance: CARISOPRODOL
  5. IRON [Concomitant]
     Active Substance: IRON
  6. CABOMETYX [Suspect]
     Active Substance: CABOZANTINIB S-MALATE
     Indication: HEPATIC CANCER
     Dosage: 40 MG, QD
     Route: 048
     Dates: start: 20180201
  7. XANAX [Concomitant]
     Active Substance: ALPRAZOLAM
  8. VITAMIN D [Concomitant]
     Active Substance: CHOLECALCIFEROL
  9. FOSAMAX [Concomitant]
     Active Substance: ALENDRONATE SODIUM
  10. OXYCODONE [Concomitant]
     Active Substance: OXYCODONE

REACTIONS (4)
  - Oedema [Unknown]
  - Temperature intolerance [Unknown]
  - Off label use [Unknown]
  - Night sweats [Unknown]

NARRATIVE: CASE EVENT DATE: 201802
